FAERS Safety Report 8066509-7 (Version None)
Quarter: 2012Q1

REPORT INFORMATION
  Report Type: 
  Country: None (occurrence: None)
  Receive Date: 20120124
  Receipt Date: 20120112
  Transmission Date: 20120608
  Serious: Yes (Hospitalization, Other)
  Sender: FDA-Public Use
  Company Number: PHHY2012SE003282

PATIENT
  Sex: Male

DRUGS (13)
  1. AFINITOR [Suspect]
     Indication: RENAL CELL CARCINOMA
     Dosage: 5 MG, DAILY
     Route: 048
     Dates: start: 20111017
  2. PREDNISOLONE [Concomitant]
     Dosage: 10 MG, UNK
     Route: 048
  3. OXYCODONE HCL [Concomitant]
     Dosage: 5 MG, UNK
     Route: 048
  4. METOPROLOL TARTRATE [Concomitant]
     Dosage: 50 MG, UNK
     Route: 048
  5. NIFEREX (POLYSACCHARIDE-IRON COMPLEX) [Concomitant]
     Dosage: 100 MG, UNK
     Route: 048
  6. ENALAPRIL MALEATE [Concomitant]
     Dosage: UNK UKN, UNK
  7. PRIMPERAN TAB [Concomitant]
     Dosage: 10 MG, UNK
     Route: 048
  8. FLUNITRAZEPAM [Concomitant]
     Dosage: 1 MG, UNK
     Route: 048
  9. ASPIRIN [Concomitant]
     Dosage: 75 MG, UNK
     Route: 048
  10. OXYCONTIN [Concomitant]
     Dosage: 5 MG, UNK
     Route: 048
  11. OMEPRAZOLE [Concomitant]
     Dosage: 20 MG, UNK
  12. EFFIENT [Concomitant]
     Dosage: 10 MG, UNK
     Route: 048
  13. LAXOBERAL [Concomitant]
     Dosage: 7.5 MG, UNK
     Route: 048

REACTIONS (5)
  - MYOCARDIAL INFARCTION [None]
  - DYSPNOEA [None]
  - TRICUSPID VALVE INCOMPETENCE [None]
  - AORTIC VALVE INCOMPETENCE [None]
  - CHEST PAIN [None]
